FAERS Safety Report 9301789 (Version 1)
Quarter: 2012Q4

REPORT INFORMATION
  Report Type: Spontaneous
  Country: GB (occurrence: None)
  Receive Date: 20121109
  Receipt Date: 20121109
  Transmission Date: 20130627
  Serious: Yes (Death)
  Sender: FDA-Public Use
  Company Number: 2011S1000625

PATIENT
  Sex: Female

DRUGS (1)
  1. CUBICIN (DAPTOMYCIN) [Suspect]

REACTIONS (1)
  - Death [None]
